FAERS Safety Report 12067614 (Version 1)
Quarter: 2016Q1

REPORT INFORMATION
  Report Type: Spontaneous
  Country: FR (occurrence: FR)
  Receive Date: 20160211
  Receipt Date: 20160211
  Transmission Date: 20160526
  Serious: Yes (Other)
  Sender: FDA-Public Use
  Company Number: FR-GLAXOSMITHKLINE-FR2016GSK017982

PATIENT
  Age: 71 Year
  Sex: Male

DRUGS (1)
  1. LAMICTAL [Suspect]
     Active Substance: LAMOTRIGINE
     Indication: PSYCHOTIC DISORDER
     Dosage: 100 MG, UNK
     Route: 048
     Dates: start: 20151001

REACTIONS (4)
  - Salivary hypersecretion [Not Recovered/Not Resolved]
  - Saliva altered [Not Recovered/Not Resolved]
  - Incorrect dose administered [Unknown]
  - Oral discomfort [Not Recovered/Not Resolved]

NARRATIVE: CASE EVENT DATE: 201510
